FAERS Safety Report 8911172 (Version 2)
Quarter: 2012Q4

REPORT INFORMATION
  Report Type: 
  Country: CO (occurrence: CO)
  Receive Date: 20121115
  Receipt Date: 20121225
  Transmission Date: 20130627
  Serious: Yes (Hospitalization, Other)
  Sender: FDA-Public Use
  Company Number: CO-AMGEN-COLSP2012072573

PATIENT
  Age: 70 Year
  Sex: Female

DRUGS (4)
  1. ENBREL [Suspect]
     Indication: RHEUMATOID ARTHRITIS
     Dosage: 50 mg, weekly
     Route: 058
     Dates: start: 2001
  2. CALCIUM [Concomitant]
     Dosage: UNK
     Route: 065
  3. COMPLEJO B                         /01418901/ [Concomitant]
     Dosage: UNK
     Route: 065
  4. ALENDRONATE [Concomitant]
     Dosage: UNK
     Route: 065

REACTIONS (5)
  - Cardiac arrest [Recovered/Resolved]
  - Syncope [Recovered/Resolved]
  - Depression [Recovering/Resolving]
  - Bone pain [Unknown]
  - Feeling cold [Unknown]
